FAERS Safety Report 16574831 (Version 6)
Quarter: 2020Q2

REPORT INFORMATION
  Report Type: Report from Study
  Country: IT (occurrence: IT)
  Receive Date: 20190715
  Receipt Date: 20200522
  Transmission Date: 20200713
  Serious: Yes (Death, Life-Threatening, Hospitalization)
  Sender: FDA-Public Use
  Company Number: IT-EXELIXIS-XL18419021084

PATIENT

DRUGS (1)
  1. CABOZANTINIB [Suspect]
     Active Substance: CABOZANTINIB
     Indication: RENAL CELL CARCINOMA
     Dosage: 60 MG 5 DAYS + 2 DAYS OFF (FIVE DAYS PER WEEK)
     Route: 048
     Dates: start: 20190423, end: 20190507

REACTIONS (4)
  - Mucosal inflammation [Unknown]
  - Off label use [Unknown]
  - Intestinal obstruction [Fatal]
  - Intestinal perforation [Fatal]

NARRATIVE: CASE EVENT DATE: 20190423
